FAERS Safety Report 17333429 (Version 1)
Quarter: 2020Q1

REPORT INFORMATION
  Report Type: Other
  Country: AT (occurrence: AT)
  Receive Date: 20200128
  Receipt Date: 20200128
  Transmission Date: 20200409
  Serious: Yes (Hospitalization)
  Sender: FDA-Public Use
  Company Number: AT-ORCHID HEALTHCARE-2079451

PATIENT
  Age: 66 Year
  Sex: Female

DRUGS (1)
  1. VENLAFAXINE HYDROCHLORIDE. [Suspect]
     Active Substance: VENLAFAXINE HYDROCHLORIDE
     Indication: MAJOR DEPRESSION
     Route: 065

REACTIONS (4)
  - Antidepressant drug level above therapeutic [Unknown]
  - Generalised tonic-clonic seizure [Recovered/Resolved]
  - Cerebral haemorrhage [Recovered/Resolved]
  - Platelet count decreased [Recovered/Resolved]
